FAERS Safety Report 8105230-3 (Version None)
Quarter: 2012Q1

REPORT INFORMATION
  Report Type: 
  Country: None (occurrence: None)
  Receive Date: 20120201
  Receipt Date: 20120116
  Transmission Date: 20120608
  Serious: Yes (Other)
  Sender: FDA-Public Use
  Company Number: CA-JNJFOC-20120109405

PATIENT
  Sex: Female

DRUGS (3)
  1. STELARA [Suspect]
     Route: 058
  2. STELARA [Suspect]
     Indication: PSORIASIS
     Route: 058
     Dates: start: 20111213, end: 20111213
  3. STELARA [Suspect]
     Route: 058
     Dates: start: 20120113, end: 20120113

REACTIONS (1)
  - HEADACHE [None]
